FAERS Safety Report 7183389-2 (Version None)
Quarter: 2010Q4

REPORT INFORMATION
  Report Type: 
  Country: None (occurrence: None)
  Receive Date: 20101220
  Receipt Date: 20101220
  Transmission Date: 20110411
  Serious: Yes (Hospitalization)
  Sender: FDA-Public Use
  Company Number: None

PATIENT
  Age: 85 Year
  Sex: Male
  Weight: 80 kg

DRUGS (4)
  1. NITROFURANTOIN [Suspect]
     Indication: URINARY TRACT INFECTION
     Dosage: PO RECENT
     Route: 048
  2. COUMADIN [Concomitant]
  3. CARDIZEM CD [Concomitant]
  4. TYLENOL [Concomitant]

REACTIONS (4)
  - DRUG INEFFECTIVE [None]
  - LUNG INFILTRATION [None]
  - PLEURAL EFFUSION [None]
  - PULMONARY TOXICITY [None]
